FAERS Safety Report 16645207 (Version 5)
Quarter: 2020Q1

REPORT INFORMATION
  Report Type: Report from Study
  Country: US (occurrence: US)
  Receive Date: 20190729
  Receipt Date: 20200221
  Transmission Date: 20200409
  Serious: Yes (Death, Hospitalization, Other)
  Sender: FDA-Public Use
  Company Number: US-GILEAD-2019-0419795

PATIENT
  Age: 67 Year
  Sex: Female
  Weight: 65.3 kg

DRUGS (74)
  1. VITAMIN D [COLECALCIFEROL] [Concomitant]
     Active Substance: CHOLECALCIFEROL
  2. COMPAZINE [Concomitant]
     Active Substance: PROCHLORPERAZINE MALEATE
  3. FUROSEMIDE. [Concomitant]
     Active Substance: FUROSEMIDE
     Dosage: 20,MG,DAILY
     Route: 041
     Dates: start: 20190626, end: 20190626
  4. PLATELETS [Concomitant]
     Active Substance: HUMAN PLATELET, ALLOGENIC
     Dosage: 262,ML,DAILY
     Route: 041
     Dates: start: 20190626, end: 20190626
  5. PLATELETS [Concomitant]
     Active Substance: HUMAN PLATELET, ALLOGENIC
     Dosage: 272,ML,DAILY
     Route: 041
     Dates: start: 20190714, end: 20190714
  6. PLATELETS [Concomitant]
     Active Substance: HUMAN PLATELET, ALLOGENIC
     Dosage: 274,ML,DAILY
     Route: 041
     Dates: start: 20190723, end: 20190723
  7. POLYETHYLENE GLYCOL [Concomitant]
     Active Substance: POLYETHYLENE GLYCOLS
     Dosage: 17,G,AS NECESSARY
     Route: 048
     Dates: start: 20190706, end: 20190717
  8. CYCLOPHOSPHAMIDE. [Suspect]
     Active Substance: CYCLOPHOSPHAMIDE
     Indication: BONE MARROW CONDITIONING REGIMEN
     Dosage: 500 MG/M2, QD
     Route: 042
     Dates: start: 20190620, end: 20190622
  9. VANCOCIN [Concomitant]
     Active Substance: VANCOMYCIN HYDROCHLORIDE
     Indication: BACTERAEMIA
     Dosage: UNK
     Dates: end: 20190723
  10. KEPPRA [Concomitant]
     Active Substance: LEVETIRACETAM
  11. ATIVAN [Concomitant]
     Active Substance: LORAZEPAM
  12. ACETAMINOPHEN. [Concomitant]
     Active Substance: ACETAMINOPHEN
     Dosage: 650,MG,AS NECESSARY
     Route: 048
     Dates: start: 20190708, end: 20190722
  13. RED BLOOD CELLS [Concomitant]
     Active Substance: HUMAN RED BLOOD CELL
     Dosage: 352.23,ML,DAILY
     Route: 041
     Dates: start: 20190709, end: 20190709
  14. RED BLOOD CELLS [Concomitant]
     Active Substance: HUMAN RED BLOOD CELL
     Dosage: 297.2,ML,DAILY
     Route: 041
     Dates: start: 20190716, end: 20190716
  15. PLATELETS [Concomitant]
     Active Substance: HUMAN PLATELET, ALLOGENIC
     Dosage: 650.37,ML,DAILY
     Route: 041
     Dates: start: 20190708, end: 20190708
  16. PLATELETS [Concomitant]
     Active Substance: HUMAN PLATELET, ALLOGENIC
     Dosage: 708,ML,DAILY
     Route: 041
     Dates: start: 20190709, end: 20190709
  17. SENNA PLUS [DOCUSATE SODIUM;SENNOSIDE A+B] [Concomitant]
     Dosage: 8.6-50,MG,TWICE DAILY
     Route: 048
     Dates: start: 20190706, end: 20190719
  18. AXICABTAGENE CILOLEUCEL [Suspect]
     Active Substance: AXICABTAGENE CILOLEUCEL
     Indication: DIFFUSE LARGE B-CELL LYMPHOMA
     Dosage: 68 ML, ONCE
     Route: 042
     Dates: start: 20190625, end: 20190625
  19. DUONEB [Concomitant]
     Active Substance: ALBUTEROL SULFATE\IPRATROPIUM BROMIDE
  20. DIFLUCAN [Concomitant]
     Active Substance: FLUCONAZOLE
  21. PROZAC [Concomitant]
     Active Substance: FLUOXETINE HYDROCHLORIDE
  22. VENTOLIN HFA [Concomitant]
     Active Substance: ALBUTEROL SULFATE
  23. ACYCLOVIR. [Concomitant]
     Active Substance: ACYCLOVIR
     Dosage: 400,MG,TWICE DAILY
     Route: 048
     Dates: start: 20190620, end: 20190723
  24. ONDANSETRON [Concomitant]
     Active Substance: ONDANSETRON
     Dosage: 8,MG,THREE TIMES DAILY
     Route: 048
     Dates: start: 20190620, end: 20190625
  25. RED BLOOD CELLS [Concomitant]
     Active Substance: HUMAN RED BLOOD CELL
     Dosage: 272,ML,DAILY
     Route: 041
     Dates: start: 20190625, end: 20190625
  26. RED BLOOD CELLS [Concomitant]
     Active Substance: HUMAN RED BLOOD CELL
     Dosage: 266,ML,DAILY
     Route: 041
     Dates: start: 20190713, end: 20190713
  27. RED BLOOD CELLS [Concomitant]
     Active Substance: HUMAN RED BLOOD CELL
     Dosage: 269.87,ML,DAILY
     Route: 041
     Dates: start: 20190721, end: 20190721
  28. PLATELETS [Concomitant]
     Active Substance: HUMAN PLATELET, ALLOGENIC
     Dosage: 578,ML,DAILY
     Route: 041
     Dates: start: 20190716, end: 20190716
  29. TYLENOL [Concomitant]
     Active Substance: ACETAMINOPHEN
  30. COLACE [Concomitant]
     Active Substance: DOCUSATE SODIUM
  31. LEVAQUIN [Concomitant]
     Active Substance: LEVOFLOXACIN
  32. SINGULAIR [Concomitant]
     Active Substance: MONTELUKAST SODIUM
  33. KLOR-CON [Concomitant]
     Active Substance: POTASSIUM CHLORIDE
  34. LEVOFLOXACIN. [Concomitant]
     Active Substance: LEVOFLOXACIN
     Dosage: 500,MG,DAILY
     Route: 048
     Dates: start: 20190621, end: 20190723
  35. FUROSEMIDE. [Concomitant]
     Active Substance: FUROSEMIDE
     Dosage: 20,MG,DAILY
     Route: 041
     Dates: start: 20190702, end: 20190703
  36. FUROSEMIDE. [Concomitant]
     Active Substance: FUROSEMIDE
     Dosage: 20,MG,DAILY
     Route: 048
     Dates: start: 20190702, end: 20190702
  37. ACETAMINOPHEN. [Concomitant]
     Active Substance: ACETAMINOPHEN
     Dosage: 650,MG,DAILY
     Route: 048
     Dates: start: 20190625, end: 20190625
  38. RED BLOOD CELLS [Concomitant]
     Active Substance: HUMAN RED BLOOD CELL
     Dosage: 282.81,ML,DAILY
     Route: 041
     Dates: start: 20190704, end: 20190704
  39. PLATELETS [Concomitant]
     Active Substance: HUMAN PLATELET, ALLOGENIC
     Dosage: 254.3,ML,DAILY
     Route: 041
     Dates: start: 20190630, end: 20190630
  40. PLATELETS [Concomitant]
     Active Substance: HUMAN PLATELET, ALLOGENIC
     Dosage: 411.29,ML,DAILY
     Route: 041
     Dates: start: 20190702, end: 20190702
  41. SODIUM CHLORIDE. [Concomitant]
     Active Substance: SODIUM CHLORIDE
  42. ZOFRAN [Concomitant]
     Active Substance: ONDANSETRON HYDROCHLORIDE
  43. FUROSEMIDE. [Concomitant]
     Active Substance: FUROSEMIDE
     Dosage: 40,MG,DAILY
     Route: 041
     Dates: start: 20190704, end: 20190705
  44. ALLOPURINOL. [Concomitant]
     Active Substance: ALLOPURINOL
     Dosage: 300,MG,DAILY
     Route: 048
     Dates: start: 20190625, end: 20190708
  45. DIPHENHYDRAMINE. [Concomitant]
     Active Substance: DIPHENHYDRAMINE
     Dosage: 25,MG,AS NECESSARY
     Route: 048
     Dates: start: 20190703, end: 20190716
  46. MAGNESIUM OXIDE. [Concomitant]
     Active Substance: MAGNESIUM OXIDE
     Dosage: 400,MG,TWICE DAILY
     Route: 048
     Dates: start: 20190627, end: 20190627
  47. POLYETHYLENE GLYCOL [Concomitant]
     Active Substance: POLYETHYLENE GLYCOLS
     Dosage: 17,G,DAILY
     Route: 048
     Dates: start: 20190628, end: 20190628
  48. PROCHLORPERAZINE. [Concomitant]
     Active Substance: PROCHLORPERAZINE
     Dosage: 10,MG,AS NECESSARY
     Route: 048
     Dates: start: 20190628, end: 20190706
  49. FLUDARABINE [Suspect]
     Active Substance: FLUDARABINE PHOSPHATE
     Indication: BONE MARROW CONDITIONING REGIMEN
     Dosage: 30 MG/M2, QD
     Route: 042
     Dates: start: 20190620, end: 20190622
  50. GLYCOLAX [Concomitant]
     Active Substance: POLYETHYLENE GLYCOL 3350
  51. FLUCONAZOLE. [Concomitant]
     Active Substance: FLUCONAZOLE
     Indication: PROPHYLAXIS
     Dosage: UNK
     Dates: start: 201906
  52. FLUOXETINE [Concomitant]
     Active Substance: FLUOXETINE HYDROCHLORIDE
     Dosage: 20,MG,DAILY
     Route: 048
     Dates: start: 20120731, end: 20190725
  53. PLATELETS [Concomitant]
     Active Substance: HUMAN PLATELET, ALLOGENIC
     Dosage: 355,ML,DAILY
     Route: 041
     Dates: start: 20190706, end: 20190706
  54. MAGNESIUM OXIDE. [Concomitant]
     Active Substance: MAGNESIUM OXIDE
     Dosage: 400,MG,TWICE DAILY
     Route: 048
     Dates: start: 20190628, end: 20190703
  55. OXYMETAZOLINE [Concomitant]
     Active Substance: OXYMETAZOLINE
     Dosage: 2,OTHER,DAILY
     Route: 045
     Dates: start: 20190701, end: 20190701
  56. ZOVIRAX [Concomitant]
     Active Substance: ACYCLOVIR
  57. ASMANEX [Concomitant]
     Active Substance: MOMETASONE FUROATE
  58. MILK OF MAGNESIA [Concomitant]
     Active Substance: MAGNESIUM HYDROXIDE
  59. COMPAZINE [PROCHLORPERAZINE EDISYLATE] [Concomitant]
     Active Substance: PROCHLORPERAZINE EDISYLATE
     Dosage: UNK
     Dates: start: 20190628, end: 20190706
  60. BACTRIM DS [Concomitant]
     Active Substance: SULFAMETHOXAZOLE\TRIMETHOPRIM
  61. FUROSEMIDE. [Concomitant]
     Active Substance: FUROSEMIDE
     Dosage: 40,MG,DAILY
     Route: 048
     Dates: start: 20190622, end: 20190709
  62. DIPHENHYDRAMINE. [Concomitant]
     Active Substance: DIPHENHYDRAMINE
     Dosage: 12.5,MG,DAILY
     Route: 041
     Dates: start: 20190625, end: 20190625
  63. ALTEPLASE. [Concomitant]
     Active Substance: ALTEPLASE
     Dosage: 2,MG,DAILY
     Route: 050
     Dates: start: 20190625, end: 20190625
  64. PLATELETS [Concomitant]
     Active Substance: HUMAN PLATELET, ALLOGENIC
     Dosage: 192,ML,DAILY
     Route: 041
     Dates: start: 20190707, end: 20190707
  65. PLATELETS [Concomitant]
     Active Substance: HUMAN PLATELET, ALLOGENIC
     Dosage: 284.12,ML,DAILY
     Route: 041
     Dates: start: 20190719, end: 20190719
  66. PLATELETS [Concomitant]
     Active Substance: HUMAN PLATELET, ALLOGENIC
     Dosage: 224.78,ML,DAILY
     Route: 041
     Dates: start: 20190721, end: 20190721
  67. FLUCONAZOLE. [Concomitant]
     Active Substance: FLUCONAZOLE
     Dosage: 400,MG,DAILY
     Route: 048
     Dates: start: 20190620, end: 20190723
  68. MONTELUKAST [Concomitant]
     Active Substance: MONTELUKAST SODIUM
     Dosage: 10,MG,DAILY
     Route: 048
     Dates: start: 20120731, end: 20190725
  69. SULFAMETHOXAZOLE-TRIMETHOPRIM [Concomitant]
     Active Substance: SULFAMETHOXAZOLE\TRIMETHOPRIM
     Dosage: 800-160,MG,OTHER
     Route: 048
     Dates: start: 20190620, end: 20190715
  70. FUROSEMIDE. [Concomitant]
     Active Substance: FUROSEMIDE
     Dosage: 20,MG,DAILY
     Route: 048
     Dates: start: 20190627, end: 20190627
  71. RED BLOOD CELLS [Concomitant]
     Active Substance: HUMAN RED BLOOD CELL
     Dosage: 293,ML,DAILY
     Route: 041
     Dates: start: 20190630, end: 20190630
  72. PLATELETS [Concomitant]
     Active Substance: HUMAN PLATELET, ALLOGENIC
     Dosage: 222.41,ML,DAILY
     Route: 041
     Dates: start: 20190703, end: 20190703
  73. PLATELETS [Concomitant]
     Active Substance: HUMAN PLATELET, ALLOGENIC
     Dosage: 219,ML,DAILY
     Route: 041
     Dates: start: 20190704, end: 20190704
  74. PLATELETS [Concomitant]
     Active Substance: HUMAN PLATELET, ALLOGENIC
     Dosage: 608.63,ML,DAILY
     Route: 041
     Dates: start: 20190712, end: 20190712

REACTIONS (2)
  - Cytokine release syndrome [Unknown]
  - Systemic mycosis [Fatal]

NARRATIVE: CASE EVENT DATE: 20190702
